FAERS Safety Report 10380994 (Version 1)
Quarter: 2014Q3

REPORT INFORMATION
  Report Type: Spontaneous
  Country: FR (occurrence: FR)
  Receive Date: 20140813
  Receipt Date: 20140813
  Transmission Date: 20150326
  Serious: Yes (Life-Threatening, Hospitalization, Other)
  Sender: FDA-Public Use
  Company Number: FR-PFIZER INC-2014223574

PATIENT
  Age: 50 Year
  Sex: Male

DRUGS (8)
  1. ZYPREXA [Suspect]
     Active Substance: OLANZAPINE
     Dosage: 200 MG, SINGLE
     Dates: start: 20140726, end: 20140726
  2. ZOLOFT [Suspect]
     Active Substance: SERTRALINE HYDROCHLORIDE
     Dosage: 75 MG, 1X/DAY
     Route: 048
  3. GLUCOPHAGE [Concomitant]
     Active Substance: METFORMIN HYDROCHLORIDE
     Dosage: 1000 MG, 2X/DAY (1 DF IN THE MORNING AND IN THE EVENING)
  4. OLANZAPINE. [Concomitant]
     Active Substance: OLANZAPINE
     Dosage: 10 MG, 2X/DAY
  5. MOPRAL [Concomitant]
     Active Substance: OMEPRAZOLE SODIUM
     Dosage: 20 MG, DAILY
  6. ZOLOFT [Suspect]
     Active Substance: SERTRALINE HYDROCHLORIDE
     Dosage: 15 DF, SINGLE
     Route: 048
     Dates: start: 20140726, end: 20140726
  7. LEVOTHYROX [Concomitant]
     Active Substance: LEVOTHYROXINE
     Dosage: 125 UG, DAILY
  8. LIPANTHYL [Concomitant]
     Active Substance: FENOFIBRATE
     Dosage: 200 MG, DAILY

REACTIONS (4)
  - Intentional overdose [Recovered/Resolved]
  - Coma [Recovered/Resolved]
  - Pneumonia aspiration [Recovered/Resolved]
  - Toxicity to various agents [Recovered/Resolved]

NARRATIVE: CASE EVENT DATE: 20140726
